FAERS Safety Report 7197743-6 (Version None)
Quarter: 2010Q4

REPORT INFORMATION
  Report Type: 
  Country: None (occurrence: None)
  Receive Date: 20101008
  Receipt Date: 20101129
  Transmission Date: 20110411
  Serious: Yes (Other)
  Sender: FDA-Public Use
  Company Number: 2010SP062665

PATIENT
  Age: 35 Year
  Sex: Female

DRUGS (1)
  1. IMPLANON [Suspect]
     Indication: PRODUCT USED FOR UNKNOWN INDICATION
     Dates: start: 20100201

REACTIONS (6)
  - AMENORRHOEA [None]
  - INJURY [None]
  - LABORATORY TEST ABNORMAL [None]
  - MENORRHAGIA [None]
  - POLYP [None]
  - ROAD TRAFFIC ACCIDENT [None]
